FAERS Safety Report 18335561 (Version 3)
Quarter: 2023Q4

REPORT INFORMATION
  Report Type: Spontaneous
  Country: US (occurrence: None)
  Receive Date: 20201001
  Receipt Date: 20231219
  Transmission Date: 20240109
  Serious: Yes (Hospitalization, Other)
  Sender: FDA-Public Use
  Company Number: 2020SF25334

PATIENT
  Age: 16340 Day
  Sex: Male
  Weight: 113.4 kg

DRUGS (46)
  1. FARXIGA [Suspect]
     Active Substance: DAPAGLIFLOZIN PROPANEDIOL
     Indication: Type 2 diabetes mellitus
     Route: 048
     Dates: start: 20140926
  2. FARXIGA [Suspect]
     Active Substance: DAPAGLIFLOZIN PROPANEDIOL
     Indication: Type 2 diabetes mellitus
     Route: 048
     Dates: start: 201410, end: 201706
  3. FARXIGA [Suspect]
     Active Substance: DAPAGLIFLOZIN PROPANEDIOL
     Indication: Type 2 diabetes mellitus
     Route: 048
     Dates: start: 20150130, end: 201504
  4. FARXIGA [Suspect]
     Active Substance: DAPAGLIFLOZIN PROPANEDIOL
     Indication: Type 2 diabetes mellitus
     Route: 048
     Dates: start: 20160728
  5. FARXIGA [Suspect]
     Active Substance: DAPAGLIFLOZIN PROPANEDIOL
     Indication: Type 2 diabetes mellitus
     Route: 048
     Dates: start: 20180425
  6. OMEPRAZOLE [Concomitant]
     Active Substance: OMEPRAZOLE
     Dates: start: 20180823
  7. ENALAPRIL [Concomitant]
     Active Substance: ENALAPRIL
     Dates: start: 20181016
  8. NITROGLYCERIN [Concomitant]
     Active Substance: NITROGLYCERIN
     Dates: start: 20181108
  9. PIOGLITAZONE [Concomitant]
     Active Substance: PIOGLITAZONE
     Dates: start: 20181016
  10. METFORMIN [Concomitant]
     Active Substance: METFORMIN HYDROCHLORIDE
  11. VICTOZA [Concomitant]
     Active Substance: LIRAGLUTIDE
     Dates: start: 20190315
  12. SILDENAFIL [Concomitant]
     Active Substance: SILDENAFIL
     Dates: start: 20190316
  13. NAPROXEN [Concomitant]
     Active Substance: NAPROXEN
     Dates: start: 20190326
  14. LIVALO [Concomitant]
     Active Substance: PITAVASTATIN CALCIUM
     Dates: start: 20190706
  15. GLIMEPIRIDE [Concomitant]
     Active Substance: GLIMEPIRIDE
  16. LEVOFLOXACIN [Concomitant]
     Active Substance: LEVOFLOXACIN
     Dates: start: 20180831
  17. PROAIR HFA [Concomitant]
     Active Substance: ALBUTEROL SULFATE
     Dates: start: 20180831
  18. TANZEUM [Concomitant]
     Active Substance: ALBIGLUTIDE
     Dates: start: 20170919
  19. ROSUVASTATIN [Concomitant]
     Active Substance: ROSUVASTATIN
     Dates: start: 20170919
  20. IBUPROFEN [Concomitant]
     Active Substance: IBUPROFEN
     Dates: start: 20151218
  21. ONGLYZA [Concomitant]
     Active Substance: SAXAGLIPTIN HYDROCHLORIDE
     Dates: start: 20160816
  22. FENOFIBRATE [Concomitant]
     Active Substance: FENOFIBRATE
     Dates: start: 20170720
  23. LEVEMIR [Concomitant]
     Active Substance: INSULIN DETEMIR
     Dates: start: 20170410
  24. HYOSCYAMINE [Concomitant]
     Active Substance: HYOSCYAMINE
     Dates: start: 20151015
  25. HYDROCODONE [Concomitant]
     Active Substance: HYDROCODONE
     Dates: start: 20151118
  26. ATORVASTATIN [Concomitant]
     Active Substance: ATORVASTATIN
  27. AMOXICILLIN [Concomitant]
     Active Substance: AMOXICILLIN
     Dates: start: 20160311
  28. PREDNISONE [Concomitant]
     Active Substance: PREDNISONE
     Dates: start: 20160311
  29. PROMETHAZINE [Concomitant]
     Active Substance: PROMETHAZINE HYDROCHLORIDE
     Dates: start: 20160616
  30. CIPROFLOXACIN [Concomitant]
     Active Substance: CIPROFLOXACIN
     Dates: start: 20160616
  31. METRONIDAZOLE [Concomitant]
     Active Substance: METRONIDAZOLE
     Dates: start: 20160616
  32. TRAMADOL [Concomitant]
     Active Substance: TRAMADOL\TRAMADOL HYDROCHLORIDE
     Dates: start: 20160616
  33. JANUMET [Concomitant]
     Active Substance: METFORMIN HYDROCHLORIDE\SITAGLIPTIN PHOSPHATE
     Dates: start: 20140829
  34. NOVOLOG [Concomitant]
     Active Substance: INSULIN ASPART
     Dates: start: 20140829
  35. SYMBICORT [Concomitant]
     Active Substance: BUDESONIDE\FORMOTEROL FUMARATE DIHYDRATE
     Dates: start: 20150423
  36. CLINDAMYCIN [Concomitant]
     Active Substance: CLINDAMYCIN
     Dates: start: 20150520
  37. ONDANSETRON [Concomitant]
     Active Substance: ONDANSETRON
     Dates: start: 20150708
  38. PRAVACHOL [Concomitant]
     Active Substance: PRAVASTATIN SODIUM
  39. HALDOL [Concomitant]
     Active Substance: HALOPERIDOL
  40. PROGRAF [Concomitant]
     Active Substance: TACROLIMUS
  41. CYCLOSPORINE [Concomitant]
     Active Substance: CYCLOSPORINE
  42. VASOTEC [Concomitant]
     Active Substance: ENALAPRIL MALEATE
  43. MOBIC [Concomitant]
     Active Substance: MELOXICAM
  44. KENALOG [Concomitant]
     Active Substance: TRIAMCINOLONE ACETONIDE
  45. ZITHROMAX [Concomitant]
     Active Substance: AZITHROMYCIN DIHYDRATE
  46. PRILOSEC [Concomitant]
     Active Substance: OMEPRAZOLE MAGNESIUM

REACTIONS (15)
  - Fournier^s gangrene [Unknown]
  - Scrotal abscess [Unknown]
  - Carbuncle [Unknown]
  - Anal abscess [Unknown]
  - Perineal abscess [Unknown]
  - Penile abscess [Unknown]
  - Rectal abscess [Unknown]
  - Necrotising fasciitis [Unknown]
  - Anal fistula [Unknown]
  - Genital abscess [Unknown]
  - Anal abscess [Unknown]
  - Pain [Unknown]
  - Scar [Unknown]
  - Nerve injury [Unknown]
  - Anal incontinence [Unknown]

NARRATIVE: CASE EVENT DATE: 20141211
